FAERS Safety Report 15554404 (Version 4)
Quarter: 2020Q4

REPORT INFORMATION
  Report Type: Spontaneous
  Country: AU (occurrence: AU)
  Receive Date: 20181026
  Receipt Date: 20201223
  Transmission Date: 20210113
  Serious: Yes (Other)
  Sender: FDA-Public Use
  Company Number: AU-TEVA-2018-AU-960696

PATIENT
  Age: 73 Year
  Sex: Male
  Weight: 70.8 kg

DRUGS (9)
  1. DASATINIB. [Suspect]
     Active Substance: DASATINIB
     Dates: start: 20181201, end: 20201110
  2. WARFARIN [Concomitant]
     Active Substance: WARFARIN
  3. INTERFERON [Concomitant]
     Active Substance: INTERFERON
     Dates: start: 20180501
  4. NILOTINIB [Suspect]
     Active Substance: NILOTINIB
     Dates: start: 20180702, end: 20181202
  5. HYDROXYUREA. [Concomitant]
     Active Substance: HYDROXYUREA
     Route: 065
     Dates: start: 20180501
  6. IMATINIB MESYLATE. [Suspect]
     Active Substance: IMATINIB MESYLATE
     Route: 065
     Dates: start: 20180502, end: 20180701
  7. SOTALOL. [Concomitant]
     Active Substance: SOTALOL
     Indication: VENTRICULAR TACHYCARDIA
     Route: 065
  8. LASIX [Concomitant]
     Active Substance: FUROSEMIDE
     Dosage: 160 MILLIGRAM DAILY;
  9. ALDACTONE [Concomitant]
     Active Substance: SPIRONOLACTONE

REACTIONS (9)
  - Platelet count decreased [Unknown]
  - Drug intolerance [Unknown]
  - Toxicity to various agents [Unknown]
  - Rales [Unknown]
  - Dyspnoea exertional [Unknown]
  - Philadelphia chromosome positive [Unknown]
  - Nausea [Unknown]
  - White blood cell count decreased [Unknown]
  - Venous pressure increased [Unknown]
